FAERS Safety Report 18604102 (Version 1)
Quarter: 2020Q4

REPORT INFORMATION
  Report Type: Spontaneous
  Country: US (occurrence: US)
  Receive Date: 20201211
  Receipt Date: 20201211
  Transmission Date: 20210114
  Serious: Yes (Death)
  Sender: FDA-Public Use
  Company Number: US-CELGENEUS-USA-20201203049

PATIENT
  Age: 18 Year
  Sex: Male

DRUGS (2)
  1. THALOMID [Suspect]
     Active Substance: THALIDOMIDE
     Indication: BRAIN NEOPLASM MALIGNANT
     Dosage: 200 MILLIGRAM (BLISTER PACK)
     Route: 048
     Dates: start: 20200430
  2. THALOMID [Suspect]
     Active Substance: THALIDOMIDE
     Indication: OFF LABEL USE
     Dosage: 200 MILLIGRAM
     Route: 048
     Dates: start: 202009

REACTIONS (1)
  - Death [Fatal]

NARRATIVE: CASE EVENT DATE: 20201129
